FAERS Safety Report 20705858 (Version 1)
Quarter: 2022Q2

REPORT INFORMATION
  Report Type: Spontaneous
  Country: US (occurrence: US)
  Receive Date: 20220413
  Receipt Date: 20220413
  Transmission Date: 20220721
  Serious: No
  Sender: FDA-Public Use
  Company Number: US-PERRIGO-21US028704

PATIENT
  Age: 82 Year
  Sex: Female
  Weight: 61.224 kg

DRUGS (2)
  1. CLOBETASOL PROPIONATE [Suspect]
     Active Substance: CLOBETASOL PROPIONATE
     Indication: Psoriasis
     Dosage: UNKNOWN, SINGLE
     Route: 061
     Dates: start: 20210923, end: 20210924
  2. CLOBETASOL PROPIONATE [Suspect]
     Active Substance: CLOBETASOL PROPIONATE
     Dosage: UNKNOWN, SINGLE
     Route: 061
     Dates: start: 20210924, end: 20210924

REACTIONS (2)
  - Accidental exposure to product [Recovered/Resolved]
  - Incorrect product dosage form administered [Recovered/Resolved]

NARRATIVE: CASE EVENT DATE: 20210924
